FAERS Safety Report 5397293-3 (Version None)
Quarter: 2007Q3

REPORT INFORMATION
  Report Type: 
  Country: None (occurrence: None)
  Receive Date: 20070723
  Receipt Date: 20070709
  Transmission Date: 20080115
  Serious: Yes (Death, Life-Threatening)
  Sender: FDA-Public Use
  Company Number: US020522

PATIENT
  Age: 65 Year
  Sex: Female

DRUGS (3)
  1. TRISENOX [Suspect]
     Indication: ACUTE PROMYELOCYTIC LEUKAEMIA
     Dosage: 8.75 MG QD INTRAVENOUS DRIP
     Route: 041
     Dates: start: 20070412, end: 20070428
  2. IDARUBICIN HCL [Suspect]
     Indication: ACUTE PROMYELOCYTIC LEUKAEMIA
     Dosage: 17 MG QD INTRAVENOUS DRIP
     Route: 041
     Dates: start: 20070413, end: 20070414
  3. DANAPAROID SODIUM [Concomitant]

REACTIONS (5)
  - BLOOD LACTATE DEHYDROGENASE INCREASED [None]
  - CEREBRAL HAEMORRHAGE [None]
  - DISSEMINATED INTRAVASCULAR COAGULATION [None]
  - HYPOKALAEMIA [None]
  - LEUKOCYTOSIS [None]
